FAERS Safety Report 18792310 (Version 2)
Quarter: 2021Q1

REPORT INFORMATION
  Report Type: Report from Study
  Country: None (occurrence: US)
  Receive Date: 20210126
  Receipt Date: 20210330
  Transmission Date: 20210419
  Serious: Yes (Other)
  Sender: FDA-Public Use
  Company Number: US-ABBVIE-21K-163-3744191-00

PATIENT
  Sex: Female
  Weight: 72.64 kg

DRUGS (2)
  1. RINVOQ [Suspect]
     Active Substance: UPADACITINIB
     Dosage: 30 TABLETS
     Route: 048
     Dates: start: 2021
  2. RINVOQ [Suspect]
     Active Substance: UPADACITINIB
     Indication: PRODUCT USED FOR UNKNOWN INDICATION
     Route: 048
     Dates: start: 202011, end: 2021

REACTIONS (4)
  - Pain in extremity [Recovered/Resolved]
  - Medical device implantation [Recovering/Resolving]
  - Arterial disorder [Unknown]
  - Nervous system disorder [Unknown]
